FAERS Safety Report 7731672-1 (Version None)
Quarter: 2011Q3

REPORT INFORMATION
  Report Type: 
  Country: None (occurrence: None)
  Receive Date: 20110906
  Receipt Date: 20110831
  Transmission Date: 20111222
  Serious: Yes (Hospitalization, Other)
  Sender: FDA-Public Use
  Company Number: CH-PFIZER INC-2011202976

PATIENT
  Age: 56 Year
  Sex: Male
  Weight: 81 kg

DRUGS (2)
  1. VARENICLINE TARTRATE [Suspect]
     Dosage: 1 G, 2X/DAY
     Route: 048
     Dates: start: 20100618, end: 20100918
  2. VARENICLINE TARTRATE [Suspect]
     Dosage: 1 G, 1X/DAY
     Dates: start: 20100919, end: 20101006

REACTIONS (2)
  - MYOCARDIAL INFARCTION [None]
  - CORONARY ARTERY STENOSIS [None]
